FAERS Safety Report 23230055 (Version 1)
Quarter: 2023Q4

REPORT INFORMATION
  Report Type: Spontaneous
  Country: US (occurrence: None)
  Receive Date: 20231123
  Receipt Date: 20231123
  Transmission Date: 20240109
  Serious: Yes (Hospitalization)
  Sender: FDA-Public Use
  Company Number: None

PATIENT
  Sex: Female
  Weight: 49 kg

DRUGS (2)
  1. AZACITIDINE [Suspect]
     Active Substance: AZACITIDINE
     Dates: end: 20231016
  2. VENETOCLAX [Suspect]
     Active Substance: VENETOCLAX
     Dates: end: 20231016

REACTIONS (16)
  - Malaise [None]
  - Melaena [None]
  - Nausea [None]
  - Vomiting [None]
  - Fatigue [None]
  - Malaise [None]
  - Dizziness [None]
  - Chills [None]
  - Pyrexia [None]
  - Pallor [None]
  - Asthenia [None]
  - Dry skin [None]
  - Anaemia [None]
  - White blood cell count decreased [None]
  - Blood creatinine increased [None]
  - Streptococcus test positive [None]

NARRATIVE: CASE EVENT DATE: 20231111
